FAERS Safety Report 19866519 (Version 4)
Quarter: 2023Q2

REPORT INFORMATION
  Report Type: Report from Study
  Country: US (occurrence: US)
  Receive Date: 20210921
  Receipt Date: 20230605
  Transmission Date: 20230721
  Serious: Yes (Hospitalization, Other)
  Sender: FDA-Public Use
  Company Number: US-NOVARTISPH-NVSC2021US206759

PATIENT
  Age: 0 Year
  Sex: Female
  Weight: 6.25 kg

DRUGS (10)
  1. ZOLGENSMA [Suspect]
     Active Substance: ONASEMNOGENE ABEPARVOVEC-XIOI
     Indication: Spinal muscular atrophy
     Dosage: 33 ML, ONCE/SINGLE
     Route: 042
     Dates: start: 20210819, end: 20210819
  2. PREDNISOLONE [Concomitant]
     Active Substance: PREDNISOLONE
     Indication: Product used for unknown indication
     Dosage: UNK
     Route: 065
  3. ISOPTO ATROPINE [Concomitant]
     Active Substance: ATROPINE SULFATE
     Indication: Product used for unknown indication
     Dosage: 1/2 DROPS, BID (MAY INCREASE TO 3 TIMES A DAY)
     Route: 065
     Dates: start: 20210823
  4. OMEPRAZOLE [Concomitant]
     Active Substance: OMEPRAZOLE
     Indication: Product used for unknown indication
     Dosage: 2.5 ML, BID
     Route: 048
     Dates: start: 20210818
  5. IRON\VITAMINS [Concomitant]
     Active Substance: IRON\VITAMINS
     Indication: Product used for unknown indication
     Dosage: 1 ML, QD
     Route: 065
     Dates: start: 20210809
  6. PREDNISOLONE SODIUM PHOSPHATE [Concomitant]
     Active Substance: PREDNISOLONE SODIUM PHOSPHATE
     Indication: Product used for unknown indication
     Dosage: 1.8 ML, QD
     Route: 048
     Dates: start: 20210818
  7. VITAMINS [Concomitant]
     Active Substance: VITAMINS
     Indication: Product used for unknown indication
     Dosage: 1 ML, QD
     Route: 065
     Dates: start: 20210809
  8. ATROPINE [Concomitant]
     Active Substance: ATROPINE
     Indication: Product used for unknown indication
     Dosage: UNK (1-2 DROPS)
     Route: 065
     Dates: start: 20210825
  9. AMOXIL [Concomitant]
     Active Substance: AMOXICILLIN
     Indication: Product used for unknown indication
     Dosage: UNK (SUSR)
     Route: 065
  10. E.E.S. [Concomitant]
     Active Substance: ERYTHROMYCIN ETHYLSUCCINATE
     Indication: Gastrointestinal disorder therapy
     Dosage: 0.95 ML, TID (SUSR, REPLATED BY ERYTHROMYCIN ETHYLSUCCINATE 400 MG/ 5 ML)
     Route: 048
     Dates: start: 20210909

REACTIONS (13)
  - Tachypnoea [Recovered/Resolved]
  - Respiratory distress [Recovered/Resolved]
  - Upper respiratory tract infection [Recovered/Resolved]
  - Respiratory rate increased [Unknown]
  - Bradycardia [Recovered/Resolved]
  - Blood pressure increased [Recovered/Resolved]
  - Secretion discharge [Unknown]
  - Lung disorder [Recovering/Resolving]
  - Respiratory syncytial virus infection [Unknown]
  - Influenza [Unknown]
  - Tachycardia [Unknown]
  - Mucosal dryness [Unknown]
  - Vomiting [Unknown]

NARRATIVE: CASE EVENT DATE: 20211002
